FAERS Safety Report 20207341 (Version 2)
Quarter: 2024Q1

REPORT INFORMATION
  Report Type: Spontaneous
  Country: US (occurrence: US)
  Receive Date: 20211220
  Receipt Date: 20240201
  Transmission Date: 20240410
  Serious: No
  Sender: FDA-Public Use
  Company Number: US-NOVEN PHARMACEUTICALS, INC.-2021US002577

PATIENT
  Age: 35 Year
  Sex: Female

DRUGS (5)
  1. MINIVELLE [Suspect]
     Active Substance: ESTRADIOL
     Indication: Artificial menopause
     Dosage: 0.05 MG, UNKNOWN
     Route: 062
     Dates: start: 20210320
  2. PROGESTERONE [Concomitant]
     Active Substance: PROGESTERONE
     Indication: Product used for unknown indication
     Dosage: 200 MG, UNKNOWN
     Route: 048
  3. VITAMINS [Concomitant]
     Active Substance: VITAMINS
     Indication: Product used for unknown indication
     Route: 065
  4. PROBIOTICS NOS [Concomitant]
     Active Substance: PROBIOTICS NOS
     Indication: Product used for unknown indication
     Route: 065
  5. XANAX [Concomitant]
     Active Substance: ALPRAZOLAM
     Indication: Product used for unknown indication
     Route: 065

REACTIONS (5)
  - Application site swelling [Not Recovered/Not Resolved]
  - Application site burn [Not Recovered/Not Resolved]
  - Application site scab [Not Recovered/Not Resolved]
  - Application site irritation [Not Recovered/Not Resolved]
  - Application site pruritus [Not Recovered/Not Resolved]

NARRATIVE: CASE EVENT DATE: 20210301
